FAERS Safety Report 7732542-5 (Version None)
Quarter: 2011Q3

REPORT INFORMATION
  Report Type: 
  Country: None (occurrence: None)
  Receive Date: 20110906
  Receipt Date: 20110901
  Transmission Date: 20111222
  Serious: Yes (Death, Hospitalization, Other)
  Sender: FDA-Public Use
  Company Number: US-AMGEN-USASP2011001071

PATIENT
  Age: 81 Year
  Sex: Male

DRUGS (15)
  1. NPLATE [Suspect]
     Indication: IDIOPATHIC THROMBOCYTOPENIC PURPURA
     Dates: start: 20090526
  2. DANAZOL [Concomitant]
  3. LANTUS [Concomitant]
  4. RHOGAM [Concomitant]
  5. PROZAC [Concomitant]
  6. INSULIN [Concomitant]
  7. NEXIUM [Concomitant]
  8. PREDNISONE [Concomitant]
  9. SODIUM BICARBONATE [Concomitant]
  10. COREG [Concomitant]
  11. WINRHO [Concomitant]
  12. SENSIPAR [Concomitant]
     Indication: PRODUCT USED FOR UNKNOWN INDICATION
  13. CARVEDILOL [Concomitant]
  14. SIMVASTATIN [Concomitant]
  15. CALCIUM CARBONATE [Concomitant]

REACTIONS (6)
  - DEATH [None]
  - RENAL FAILURE [None]
  - ANGIOGRAM [None]
  - PULMONARY OEDEMA [None]
  - PERIPHERAL REVASCULARISATION [None]
  - ATHERECTOMY [None]
